FAERS Safety Report 9110139 (Version 3)
Quarter: 2013Q1

REPORT INFORMATION
  Report Type: Spontaneous
  Country: CO (occurrence: CO)
  Receive Date: 20130222
  Receipt Date: 20130307
  Transmission Date: 20140127
  Serious: Yes (Other)
  Sender: FDA-Public Use
  Company Number: CO-ROCHE-1193550

PATIENT
  Sex: Male
  Weight: 62 kg

DRUGS (3)
  1. LUCENTIS [Suspect]
     Indication: OPHTHALMOLOGIC TREATMENT
     Route: 050
  2. SALICYLIC ACID [Concomitant]
     Route: 065
  3. ENALAPRIL [Concomitant]
     Route: 065

REACTIONS (5)
  - Blindness [Not Recovered/Not Resolved]
  - Eye movement disorder [Not Recovered/Not Resolved]
  - Headache [Not Recovered/Not Resolved]
  - Eye pain [Not Recovered/Not Resolved]
  - Drug ineffective [Unknown]
